FAERS Safety Report 20481163 (Version 23)
Quarter: 2025Q4

REPORT INFORMATION
  Report Type: Spontaneous
  Country: US (occurrence: US)
  Receive Date: 20220216
  Receipt Date: 20251117
  Transmission Date: 20260117
  Serious: Yes (Hospitalization, Other)
  Sender: TAKEDA
  Company Number: US-TAKEDA-2022TUS009642

PATIENT
  Age: 42 Year
  Sex: Female

DRUGS (3)
  1. ENTYVIO [Suspect]
     Active Substance: VEDOLIZUMAB
     Indication: Crohn^s disease
     Dosage: UNK
  2. ENTYVIO [Suspect]
     Active Substance: VEDOLIZUMAB
     Dosage: UNK
  3. BENADRYL [Suspect]
     Active Substance: DIPHENHYDRAMINE HYDROCHLORIDE
     Indication: Product used for unknown indication
     Dosage: UNK

REACTIONS (36)
  - Atypical pneumonia [Recovering/Resolving]
  - Pleural effusion [Recovering/Resolving]
  - Haemoptysis [Not Recovered/Not Resolved]
  - Uveitis [Unknown]
  - Rheumatoid arthritis [Unknown]
  - Myocardial injury [Recovering/Resolving]
  - Pneumothorax [Not Recovered/Not Resolved]
  - Crohn^s disease [Not Recovered/Not Resolved]
  - Dry skin [Not Recovered/Not Resolved]
  - Road traffic accident [Not Recovered/Not Resolved]
  - Visual impairment [Not Recovered/Not Resolved]
  - Vein disorder [Not Recovered/Not Resolved]
  - Tooth fracture [Not Recovered/Not Resolved]
  - COVID-19 [Not Recovered/Not Resolved]
  - Gastroenteritis viral [Recovered/Resolved]
  - Anxiety [Unknown]
  - Dysphonia [Not Recovered/Not Resolved]
  - Migraine [Unknown]
  - Arthritis [Unknown]
  - Rash macular [Unknown]
  - Bronchial secretion retention [Not Recovered/Not Resolved]
  - Lung disorder [Recovering/Resolving]
  - Pulmonary mass [Not Recovered/Not Resolved]
  - Depression [Not Recovered/Not Resolved]
  - Asthenia [Recovering/Resolving]
  - Pharyngitis [Unknown]
  - Nasopharyngitis [Not Recovered/Not Resolved]
  - Cough [Not Recovered/Not Resolved]
  - Fatigue [Not Recovered/Not Resolved]
  - Influenza [Not Recovered/Not Resolved]
  - Stress [Not Recovered/Not Resolved]
  - Concussion [Not Recovered/Not Resolved]
  - Somnolence [Recovered/Resolved]
  - Brain fog [Not Recovered/Not Resolved]
  - Post-traumatic stress disorder [Recovering/Resolving]
  - Oropharyngeal pain [Not Recovered/Not Resolved]

NARRATIVE: CASE EVENT DATE: 20220101
